FAERS Safety Report 7249300-0 (Version None)
Quarter: 2011Q1

REPORT INFORMATION
  Report Type: 
  Country: None (occurrence: None)
  Receive Date: 20110128
  Receipt Date: 20101110
  Transmission Date: 20110831
  Serious: Yes (Hospitalization, Other)
  Sender: FDA-Public Use
  Company Number: US-BAYER-201038086NA

PATIENT
  Sex: Female
  Weight: 68 kg

DRUGS (14)
  1. SINGULAIR [Concomitant]
     Indication: PRODUCT USED FOR UNKNOWN INDICATION
  2. I.V. SOLUTIONS [Concomitant]
     Indication: COLITIS
     Dosage: UNK
     Route: 042
     Dates: start: 20080513
  3. MORPHINE [Concomitant]
     Indication: PAIN MANAGEMENT
     Dosage: UNK
     Route: 042
     Dates: start: 20080513
  4. LIPITOR [Concomitant]
     Indication: HYPERTENSION
     Dosage: 80 MG, UNK
     Dates: start: 20070901
  5. NEXIUM [Concomitant]
     Indication: PRODUCT USED FOR UNKNOWN INDICATION
     Dosage: 40 MG, UNK
     Dates: start: 20080101
  6. LANTUS [Concomitant]
     Indication: TYPE 1 DIABETES MELLITUS
     Dosage: UNK
     Dates: start: 20070101
  7. PREMARIN [Concomitant]
     Indication: PRODUCT USED FOR UNKNOWN INDICATION
     Dosage: 6.25 UNK, UNK
     Dates: start: 20090101
  8. LISINOPRIL [Concomitant]
     Indication: HYPERTENSION
     Dosage: 10 MG, UNK
     Dates: start: 20070901
  9. YAZ [Suspect]
     Indication: PREMENSTRUAL SYNDROME
  10. OCELLA [Suspect]
     Indication: ACNE
  11. REGLAN [Concomitant]
     Indication: COLITIS
     Dosage: UNK
     Dates: start: 20080513
  12. YASMIN [Suspect]
     Indication: PREMENSTRUAL SYNDROME
     Dosage: UNK
     Dates: start: 20060101, end: 20090101
  13. LEVOXYL [Concomitant]
     Indication: PRODUCT USED FOR UNKNOWN INDICATION
     Dosage: 0.125 MG, UNK
  14. LORTAB [Concomitant]
     Indication: ABDOMINAL PAIN
     Dosage: UNK
     Dates: start: 20080513

REACTIONS (5)
  - CHOLECYSTITIS [None]
  - CHOLECYSTITIS CHRONIC [None]
  - HEPATIC STEATOSIS [None]
  - APPENDICITIS [None]
  - BILIARY DYSKINESIA [None]
